FAERS Safety Report 15929563 (Version 3)
Quarter: 2019Q2

REPORT INFORMATION
  Report Type: Spontaneous
  Country: US (occurrence: US)
  Receive Date: 20190206
  Receipt Date: 20190423
  Transmission Date: 20190711
  Serious: Yes (Other)
  Sender: FDA-Public Use
  Company Number: US-ASTRAZENECA-2018SF14570

PATIENT
  Age: 27469 Day
  Sex: Male

DRUGS (16)
  1. NEXIUM 24HR [Suspect]
     Active Substance: ESOMEPRAZOLE MAGNESIUM
     Indication: GASTROOESOPHAGEAL REFLUX DISEASE
     Route: 048
     Dates: start: 200301, end: 201701
  2. PRILOSEC OTC [Suspect]
     Active Substance: OMEPRAZOLE MAGNESIUM
     Indication: GASTROOESOPHAGEAL REFLUX DISEASE
     Route: 048
     Dates: start: 2003, end: 2017
  3. LEVOTHYROXINE. [Concomitant]
     Active Substance: LEVOTHYROXINE
  4. SINGULAIR [Concomitant]
     Active Substance: MONTELUKAST SODIUM
  5. PREDNISONE. [Concomitant]
     Active Substance: PREDNISONE
  6. NEXIUM 24HR [Suspect]
     Active Substance: ESOMEPRAZOLE MAGNESIUM
     Indication: GASTROOESOPHAGEAL REFLUX DISEASE
     Route: 048
     Dates: start: 2014, end: 2017
  7. DOXAZOSIN [Concomitant]
     Active Substance: DOXAZOSIN\DOXAZOSIN MESYLATE
  8. ADVAIR DISKUS [Concomitant]
     Active Substance: FLUTICASONE PROPIONATE\SALMETEROL XINAFOATE
  9. AMLODIPINE [Concomitant]
     Active Substance: AMLODIPINE BESYLATE
  10. CIPRO [Concomitant]
     Active Substance: CIPROFLOXACIN HYDROCHLORIDE
  11. PRILOSEC OTC [Suspect]
     Active Substance: OMEPRAZOLE MAGNESIUM
     Indication: GASTROOESOPHAGEAL REFLUX DISEASE
     Route: 048
     Dates: start: 200301, end: 201701
  12. SINGULAIR [Concomitant]
     Active Substance: MONTELUKAST SODIUM
  13. VENTOLIN HFA [Concomitant]
     Active Substance: ALBUTEROL SULFATE
  14. BENZONATATE. [Concomitant]
     Active Substance: BENZONATATE
  15. PREDNISONE. [Concomitant]
     Active Substance: PREDNISONE
  16. LORATADINE. [Concomitant]
     Active Substance: LORATADINE

REACTIONS (4)
  - End stage renal disease [Unknown]
  - Chronic kidney disease [Unknown]
  - Renal failure [Unknown]
  - Acute kidney injury [Not Recovered/Not Resolved]

NARRATIVE: CASE EVENT DATE: 20121214
